FAERS Safety Report 4823271-6 (Version None)
Quarter: 2005Q4

REPORT INFORMATION
  Report Type: 
  Country: None (occurrence: None)
  Receive Date: 20051107
  Receipt Date: 20051025
  Transmission Date: 20060501
  Serious: Yes (Death, Hospitalization, Disabling, Other)
  Sender: FDA-Public Use
  Company Number: 2005146684

PATIENT
  Age: 33 Year
  Sex: Male
  Weight: 72 kg

DRUGS (4)
  1. METHYLPREDNISOLONE SODIUM SUCCINATE [Suspect]
     Indication: OLIGODENDROGLIOMA
     Dosage: 200 MG (100 MG, 2 IN 1 D), INTRAVENOUS
     Route: 042
     Dates: start: 20040928
  2. TEMODAL [Suspect]
     Indication: OLIGODENDROGLIOMA
     Dosage: 140 MG (1 D), ORAL
     Route: 048
     Dates: start: 20040928, end: 20041110
  3. DEPAKENE [Concomitant]
  4. OMEPRAZOLE [Concomitant]
     Route: 048

REACTIONS (10)
  - ANXIETY [None]
  - BRAIN OEDEMA [None]
  - CONVULSION [None]
  - DEPRESSION [None]
  - DISEASE PROGRESSION [None]
  - GENERAL PHYSICAL HEALTH DETERIORATION [None]
  - GLIOBLASTOMA [None]
  - ORAL CANDIDIASIS [None]
  - PNEUMOCYSTIS JIROVECI PNEUMONIA [None]
  - PYREXIA [None]
